FAERS Safety Report 4416674-5 (Version None)
Quarter: 2004Q3

REPORT INFORMATION
  Report Type: 
  Country: None (occurrence: None)
  Receive Date: 20040802
  Receipt Date: 20040723
  Transmission Date: 20050211
  Serious: Yes (Other)
  Sender: FDA-Public Use
  Company Number: US-SHR-04-023006

PATIENT
  Age: 19 Year
  Sex: Female
  Weight: 55.3 kg

DRUGS (1)
  1. YASMIN [Suspect]
     Indication: PREMENSTRUAL SYNDROME
     Dosage: 1 TAB(S), 1X/DAY, ORAL
     Route: 048
     Dates: start: 20030801

REACTIONS (5)
  - ARRHYTHMIA [None]
  - GENERAL NUTRITION DISORDER [None]
  - HYPERVENTILATION [None]
  - MOUNTAIN SICKNESS ACUTE [None]
  - SYNCOPE [None]
